FAERS Safety Report 7374519-8 (Version None)
Quarter: 2011Q1

REPORT INFORMATION
  Report Type: 
  Country: None (occurrence: None)
  Receive Date: 20110325
  Receipt Date: 20100208
  Transmission Date: 20110831
  Serious: No
  Sender: FDA-Public Use
  Company Number: US-MYLANLABS-2010S1001974

PATIENT
  Age: 80 Year
  Sex: Female

DRUGS (9)
  1. TOVIAZ [Interacting]
     Indication: POLLAKIURIA
     Route: 048
     Dates: start: 20100101, end: 20100201
  2. HYDROCHLOROTHIAZIDE [Concomitant]
     Indication: BLOOD PRESSURE INCREASED
     Route: 048
  3. TOVIAZ [Interacting]
     Route: 048
     Dates: start: 20100201, end: 20100205
  4. ERYTHROMYCIN [Interacting]
     Indication: SINUSITIS
     Route: 048
     Dates: start: 20100204, end: 20100204
  5. AVAPRO [Concomitant]
     Indication: BLOOD PRESSURE INCREASED
     Route: 048
  6. FENTANYL-100 [Suspect]
     Indication: SPINAL COLUMN STENOSIS
     Dosage: Q2D
     Route: 062
     Dates: start: 20100203, end: 20100204
  7. ERYTHROMYCIN [Interacting]
     Route: 048
     Dates: start: 20100205
  8. ASPIRIN [Concomitant]
     Route: 048
  9. FENTANYL-100 [Interacting]
     Dosage: Q3D
     Route: 062
     Dates: start: 20100205

REACTIONS (6)
  - THERAPY NAIVE [None]
  - DIZZINESS [None]
  - VISION BLURRED [None]
  - DRUG INTERACTION [None]
  - INCORRECT DRUG ADMINISTRATION DURATION [None]
  - CONFUSIONAL STATE [None]
